FAERS Safety Report 14270463 (Version 1)
Quarter: 2017Q4

REPORT INFORMATION
  Report Type: Spontaneous
  Country: FR (occurrence: FR)
  Receive Date: 20171211
  Receipt Date: 20171211
  Transmission Date: 20180321
  Serious: Yes (Disabling)
  Sender: FDA-Public Use
  Company Number: FR-OTSUKA-2016_006862

PATIENT
  Age: 5 Decade
  Sex: Female

DRUGS (3)
  1. ABILIFY [Suspect]
     Active Substance: ARIPIPRAZOLE
     Indication: BIPOLAR DISORDER
     Dosage: 5 MG, QD
     Route: 048
     Dates: start: 20160319, end: 20160319
  2. OLANZAPINE. [Concomitant]
     Active Substance: OLANZAPINE
     Indication: PRODUCT USED FOR UNKNOWN INDICATION
     Dosage: 1 DF, (15/20MG)(SINCE 20 YEARS)
     Route: 065
  3. ZYPREXA [Concomitant]
     Active Substance: OLANZAPINE
     Indication: PRODUCT USED FOR UNKNOWN INDICATION
     Dosage: 1 DF, (15/20MG)(SINCE 20 YEARS)
     Route: 065

REACTIONS (5)
  - Feeling cold [Recovered/Resolved]
  - Fatigue [Recovered/Resolved]
  - Headache [Recovered/Resolved]
  - Dizziness [Recovered/Resolved]
  - Influenza like illness [Unknown]

NARRATIVE: CASE EVENT DATE: 20160319
